FAERS Safety Report 4651598-X (Version None)
Quarter: 2005Q2

REPORT INFORMATION
  Report Type: 
  Country: None (occurrence: None)
  Receive Date: 20050404
  Receipt Date: 20041109
  Transmission Date: 20051028
  Serious: No
  Sender: FDA-Public Use
  Company Number: USA041183615

PATIENT
  Age: 29 Year
  Sex: Female

DRUGS (4)
  1. CYMBALTA [Suspect]
     Indication: DEPRESSION
     Dosage: 120 MG DAY
  2. AVANDIA [Concomitant]
  3. LEVOTHYROXINE SODIUM [Concomitant]
  4. EFFEXOR [Concomitant]

REACTIONS (1)
  - PRESCRIBED OVERDOSE [None]
